FAERS Safety Report 24645294 (Version 2)
Quarter: 2024Q4

REPORT INFORMATION
  Report Type: Spontaneous
  Country: CN (occurrence: CN)
  Receive Date: 20241121
  Receipt Date: 20241129
  Transmission Date: 20250115
  Serious: Yes (Other)
  Sender: CHEPLAPHARM
  Company Number: CN-CHEPLA-2024014516

PATIENT
  Age: 36 Year
  Sex: Male

DRUGS (2)
  1. OLANZAPINE [Suspect]
     Active Substance: OLANZAPINE
     Indication: Schizophrenia
     Dosage: DAILY DOSE: 20 MILLIGRAM
     Route: 048
     Dates: start: 20241016, end: 20241030
  2. OLANZAPINE [Suspect]
     Active Substance: OLANZAPINE
     Indication: Schizophrenia
     Dosage: DOSE REDUCED
     Route: 048

REACTIONS (2)
  - Tongue paralysis [Recovering/Resolving]
  - Drooling [Recovering/Resolving]

NARRATIVE: CASE EVENT DATE: 20241030
